FAERS Safety Report 7557522-4 (Version None)
Quarter: 2011Q2

REPORT INFORMATION
  Report Type: 
  Country: None (occurrence: None)
  Receive Date: 20110620
  Receipt Date: 20110614
  Transmission Date: 20111010
  Serious: Yes (Life-Threatening, Hospitalization)
  Sender: FDA-Public Use
  Company Number: JP-PFIZER INC-2011103810

PATIENT
  Age: 62 Year
  Sex: Male
  Weight: 50.7 kg

DRUGS (10)
  1. CALCIUM CARBONATE [Concomitant]
     Indication: HYPERPHOSPHATAEMIA
     Dosage: 1 G, 3X/DAY
     Route: 048
     Dates: start: 20101101, end: 20110508
  2. INTRON A [Concomitant]
     Indication: RENAL CELL CARCINOMA
     Dosage: 300 MILION UNITS/DAY, 3X/WEEK
     Route: 058
     Dates: start: 20110212, end: 20110507
  3. RABEPRAZOLE SODIUM [Concomitant]
     Indication: REFLUX OESOPHAGITIS
     Dosage: 10 MG, 1X/DAY
     Route: 048
     Dates: start: 20101101, end: 20110508
  4. VALSARTAN [Concomitant]
     Indication: HYPERTENSION
     Dosage: 160 MG, 1X/DAY
     Route: 048
     Dates: start: 20101101, end: 20110508
  5. SEVELAMER HYDROCHLORIDE [Concomitant]
     Indication: HYPERPHOSPHATAEMIA
     Dosage: UNK
     Route: 048
     Dates: start: 20101101, end: 20110508
  6. NORVASC [Concomitant]
     Indication: HYPERTENSION
     Dosage: 7.5 MG, 1X/DAY
     Route: 048
     Dates: start: 20101101, end: 20110508
  7. CALCIUM POLYSTYRENE SULFONATE [Concomitant]
     Indication: HYPERKALAEMIA
     Dosage: 25 G, 1X/DAY
     Route: 048
     Dates: start: 20101101, end: 20110508
  8. NAPROXEN [Concomitant]
     Indication: PYREXIA
     Dosage: 100 MG, 3X/DAY
     Route: 048
     Dates: start: 20110421, end: 20110508
  9. SUTENT [Suspect]
     Indication: METASTATIC RENAL CELL CARCINOMA
     Dosage: 25 MG, 1X/DAY
     Route: 048
     Dates: start: 20110415, end: 20110509
  10. EPOGIN [Concomitant]
     Indication: NEPHROGENIC ANAEMIA
     Dosage: 3000 UNITS/DAY, 3X/WEEK
     Route: 042
     Dates: start: 20110415

REACTIONS (2)
  - ALTERED STATE OF CONSCIOUSNESS [None]
  - TONIC CONVULSION [None]
